FAERS Safety Report 10204737 (Version 1)
Quarter: 2014Q2

REPORT INFORMATION
  Report Type: Spontaneous
  Country: US (occurrence: None)
  Receive Date: 20140527
  Receipt Date: 20140527
  Transmission Date: 20141212
  Serious: Yes (Hospitalization)
  Sender: FDA-Public Use
  Company Number: None

PATIENT
  Age: 54 Year
  Sex: Female

DRUGS (4)
  1. NITROFURANTOIN [Suspect]
     Indication: URINARY TRACT INFECTION
     Dates: start: 20120108, end: 20120626
  2. PAXIL [Concomitant]
  3. KLONOPIN [Concomitant]
  4. VESICARE [Concomitant]

REACTIONS (17)
  - Liver injury [None]
  - Condition aggravated [None]
  - Autoimmune hepatitis [None]
  - Hepatic encephalopathy [None]
  - Hepatitis B surface antibody positive [None]
  - Hepatic failure [None]
  - Hepatotoxicity [None]
  - Respiratory failure [None]
  - Liver transplant [None]
  - Pathogen resistance [None]
  - Urinary tract infection [None]
  - Klebsiella infection [None]
  - Jaundice [None]
  - Post procedural complication [None]
  - Gamma-glutamyltransferase increased [None]
  - Pyrexia [None]
  - Leukocytosis [None]
